FAERS Safety Report 15701489 (Version 1)
Quarter: 2018Q4

REPORT INFORMATION
  Report Type: Spontaneous
  Country: CN (occurrence: CN)
  Receive Date: 20181207
  Receipt Date: 20181207
  Transmission Date: 20190205
  Serious: Yes (Other)
  Sender: FDA-Public Use
  Company Number: CN-BAXTER-2018BAX029558

PATIENT
  Age: 76 Year
  Sex: Female

DRUGS (3)
  1. 20% MANNITOL INJECTION [Suspect]
     Active Substance: MANNITOL
     Indication: DEHYDRATION
     Route: 041
     Dates: start: 20181014, end: 20181014
  2. CEREBROPROTEIN HYDROLYSATE [Suspect]
     Active Substance: PROTEIN HYDROLYSATE
     Indication: NUTRITIONAL SUPPLEMENTATION
     Dosage: BRAND NAME: ANPUFU
     Route: 041
     Dates: start: 20181012, end: 20181014
  3. BETAHISTINE DIHYDROCHLORIDE [Suspect]
     Active Substance: BETAHISTINE
     Indication: CARDIOVASCULAR DISORDER
     Route: 041
     Dates: start: 20181012, end: 20181014

REACTIONS (1)
  - Rash papular [Recovering/Resolving]

NARRATIVE: CASE EVENT DATE: 20181014
